FAERS Safety Report 17872133 (Version 2)
Quarter: 2020Q2

REPORT INFORMATION
  Report Type: Spontaneous
  Country: US (occurrence: US)
  Receive Date: 20200608
  Receipt Date: 20200610
  Transmission Date: 20200714
  Serious: Yes (Death)
  Sender: FDA-Public Use
  Company Number: US-SYNEX-T202002527

PATIENT
  Age: 74 Year
  Sex: Male

DRUGS (1)
  1. INOMAX [Suspect]
     Active Substance: NITRIC OXIDE
     Indication: VASCULAR GRAFT
     Dosage: 40 PPM (INHALATION)
     Route: 055
     Dates: start: 20200413, end: 20200413

REACTIONS (3)
  - Cardiac valve replacement complication [Fatal]
  - Product use in unapproved indication [Unknown]
  - Product use issue [Unknown]

NARRATIVE: CASE EVENT DATE: 20200413
